FAERS Safety Report 8586577-3 (Version None)
Quarter: 2012Q3

REPORT INFORMATION
  Report Type: 
  Country: None (occurrence: None)
  Receive Date: 20120810
  Receipt Date: 20120802
  Transmission Date: 20120928
  Serious: Yes (Hospitalization)
  Sender: FDA-Public Use
  Company Number: US-BAYER-2012-080085

PATIENT

DRUGS (1)
  1. NEXAVAR [Suspect]
     Dosage: 120 MG, UNK

REACTIONS (1)
  - HOSPITALISATION [None]
